FAERS Safety Report 5150562-4 (Version None)
Quarter: 2006Q4

REPORT INFORMATION
  Report Type: 
  Country: None (occurrence: None)
  Receive Date: 20061108
  Receipt Date: 20061025
  Transmission Date: 20070319
  Serious: Yes (Other)
  Sender: FDA-Public Use
  Company Number: 2006130022

PATIENT
  Sex: Male

DRUGS (1)
  1. TRIFLUCAN (FLUCONAZOLE) [Suspect]
     Dosage: 100 MG (1 IN 1 D)

REACTIONS (3)
  - MYALGIA [None]
  - NEURITIS [None]
  - SCIATICA [None]
